FAERS Safety Report 17921235 (Version 2)
Quarter: 2020Q3

REPORT INFORMATION
  Report Type: Report from Study
  Country: None (occurrence: US)
  Receive Date: 20200622
  Receipt Date: 20200729
  Transmission Date: 20201103
  Serious: Yes (Other)
  Sender: FDA-Public Use
  Company Number: US-ABBVIE-20P-163-3453387-00

PATIENT
  Sex: Female

DRUGS (2)
  1. IMBRUVICA [Suspect]
     Active Substance: IBRUTINIB
     Indication: CHRONIC LYMPHOCYTIC LEUKAEMIA
     Route: 048
     Dates: start: 20200221
  2. IMBRUVICA [Suspect]
     Active Substance: IBRUTINIB
     Route: 048
     Dates: end: 20200721

REACTIONS (5)
  - Nodule [Unknown]
  - Chronic lymphocytic leukaemia (in remission) [Unknown]
  - Pain [Unknown]
  - Immunodeficiency [Unknown]
  - Insomnia [Unknown]

NARRATIVE: CASE EVENT DATE: 2020
